FAERS Safety Report 14666796 (Version 1)
Quarter: 2018Q1

REPORT INFORMATION
  Report Type: Spontaneous
  Country: US (occurrence: US)
  Receive Date: 20180322
  Receipt Date: 20180322
  Transmission Date: 20180509
  Serious: No
  Sender: FDA-Public Use
  Company Number: US-ZYDUS-018963

PATIENT
  Age: 45 Year
  Sex: Female

DRUGS (3)
  1. LOSARTAN. [Concomitant]
     Active Substance: LOSARTAN
     Indication: HYPERTENSION
  2. METOPROLOL. [Concomitant]
     Active Substance: METOPROLOL
     Indication: HYPERTENSION
  3. LAMOTRIGINE. [Suspect]
     Active Substance: LAMOTRIGINE
     Indication: BIPOLAR DISORDER
     Route: 048
     Dates: start: 20180115, end: 20180120

REACTIONS (11)
  - Glossodynia [Recovered/Resolved]
  - Tongue blistering [Recovered/Resolved]
  - Tongue ulceration [Recovered/Resolved]
  - Tongue haemorrhage [Recovered/Resolved]
  - Oral mucosal blistering [Recovered/Resolved]
  - Mouth haemorrhage [Recovered/Resolved]
  - Oral pain [Recovered/Resolved]
  - Tongue disorder [Recovered/Resolved]
  - Tongue eruption [Recovered/Resolved]
  - Eating disorder [Recovered/Resolved]
  - Mouth ulceration [Recovered/Resolved]

NARRATIVE: CASE EVENT DATE: 20180115
